FAERS Safety Report 5671089-7 (Version None)
Quarter: 2008Q1

REPORT INFORMATION
  Report Type: 
  Country: None (occurrence: None)
  Receive Date: 20080317
  Receipt Date: 20080317
  Transmission Date: 20080703
  Serious: Yes (Disabling)
  Sender: FDA-Public Use
  Company Number: None

PATIENT
  Age: 67 Year
  Sex: Female
  Weight: 70.3075 kg

DRUGS (1)
  1. MICARDIS HCT [Suspect]
     Indication: HYPERTENSION
     Dosage: 80 MG/12.5MG DAILY (THEN SWITCHED TO MICARDIS 80MG FROM MICARDIS HCT)
     Dates: start: 20021001, end: 20080303

REACTIONS (1)
  - GOUT [None]
